FAERS Safety Report 12286988 (Version 1)
Quarter: 2016Q2

REPORT INFORMATION
  Report Type: Spontaneous
  Country: LU (occurrence: LU)
  Receive Date: 20160420
  Receipt Date: 20160420
  Transmission Date: 20160815
  Serious: Yes (Other)
  Sender: FDA-Public Use
  Company Number: LU-AMGEN-LUXSP2016047903

PATIENT
  Sex: Male

DRUGS (1)
  1. XGEVA [Suspect]
     Active Substance: DENOSUMAB
     Indication: PROSTATE CANCER
     Dosage: UNK
     Route: 065

REACTIONS (2)
  - Tooth disorder [Unknown]
  - Osteonecrosis of jaw [Unknown]
